FAERS Safety Report 9492307 (Version 2)
Quarter: 2015Q2

REPORT INFORMATION
  Report Type: Spontaneous
  Country: ES (occurrence: ES)
  Receive Date: 20130830
  Receipt Date: 20150424
  Transmission Date: 20150821
  Serious: Yes (Hospitalization)
  Sender: FDA-Public Use
  Company Number: PHHY2013ES092762

PATIENT
  Age: 78 Year
  Sex: Female

DRUGS (2)
  1. LEVOFLOXACIN. [Suspect]
     Active Substance: LEVOFLOXACIN
     Indication: HIP ARTHROPLASTY
     Route: 065
  2. CLINDAMYCIN [Suspect]
     Active Substance: CLINDAMYCIN\CLINDAMYCIN PHOSPHATE
     Indication: HIP ARTHROPLASTY
     Route: 065

REACTIONS (12)
  - Rash papular [Recovered/Resolved]
  - Oedema [Recovered/Resolved]
  - Generalised erythema [Recovered/Resolved]
  - Scab [Unknown]
  - Leukocytosis [Unknown]
  - Skin plaque [Recovered/Resolved]
  - Acute generalised exanthematous pustulosis [Unknown]
  - Rash pustular [Recovered/Resolved]
  - Face oedema [Unknown]
  - Skin exfoliation [Recovered/Resolved]
  - Erythema [Recovered/Resolved]
  - Rash [Recovered/Resolved]
